FAERS Safety Report 11589451 (Version 4)
Quarter: 2016Q4

REPORT INFORMATION
  Report Type: Spontaneous
  Country: US (occurrence: US)
  Receive Date: 20151002
  Receipt Date: 20161013
  Transmission Date: 20170206
  Serious: Yes (Hospitalization, Disabling)
  Sender: FDA-Public Use
  Company Number: US-ENDO PHARMACEUTICALS INC.-2015-003128

PATIENT
  Age: 59 Year
  Sex: Male
  Weight: 122.58 kg

DRUGS (6)
  1. ANDROGEL [Suspect]
     Active Substance: TESTOSTERONE
     Indication: ANDROGEN REPLACEMENT THERAPY
     Route: 061
     Dates: start: 200803, end: 200811
  2. TESTIM [Suspect]
     Active Substance: TESTOSTERONE
     Indication: ANDROGEN REPLACEMENT THERAPY
     Route: 062
     Dates: start: 200711, end: 200810
  3. CELEBREX [Concomitant]
     Active Substance: CELECOXIB
     Indication: OSTEOARTHRITIS
     Route: 065
     Dates: start: 2007, end: 2008
  4. ASPRIN [Concomitant]
     Active Substance: ASPIRIN
     Indication: PERIPHERAL VENOUS DISEASE
     Route: 065
     Dates: start: 2006
  5. FLEXERIL [Concomitant]
     Active Substance: CYCLOBENZAPRINE HYDROCHLORIDE
     Indication: OSTEOARTHRITIS
     Route: 065
     Dates: start: 2007, end: 2011
  6. FLOMAX [Concomitant]
     Active Substance: TAMSULOSIN HYDROCHLORIDE
     Indication: PROSTATIC DISORDER
     Route: 065
     Dates: start: 2007, end: 2011

REACTIONS (3)
  - Acute myocardial infarction [Not Recovered/Not Resolved]
  - Hypertension [Unknown]
  - Venous thrombosis [Unknown]

NARRATIVE: CASE EVENT DATE: 200803
